FAERS Safety Report 8101761-0 (Version None)
Quarter: 2012Q1

REPORT INFORMATION
  Report Type: 
  Country: None (occurrence: None)
  Receive Date: 20120131
  Receipt Date: 20120120
  Transmission Date: 20120608
  Serious: Yes (Hospitalization, Other)
  Sender: FDA-Public Use
  Company Number: PHHY2011JP88797

PATIENT
  Sex: Female
  Weight: 51 kg

DRUGS (9)
  1. PERSANTIN [Concomitant]
     Dosage: 300 MG, UNK
     Dates: start: 20100406
  2. ALLOPURINOL [Concomitant]
     Dosage: 200 MG, UNK
     Route: 048
     Dates: start: 20100406
  3. ZETIA [Concomitant]
     Dosage: 10 MG, UNK
     Route: 048
     Dates: start: 20100406
  4. NESPO [Concomitant]
     Dosage: 60 UG, UNK
     Route: 058
     Dates: start: 20101019
  5. DILAZEP DIHYDROCHLORIDE [Concomitant]
     Dosage: 150 MG, UNK
     Route: 048
     Dates: start: 20100406
  6. ALISKIREN [Suspect]
     Dosage: 150 MG, QD
     Route: 048
     Dates: start: 20100406
  7. METHOTREXATE [Concomitant]
     Route: 048
     Dates: start: 20110124
  8. LIMAPROST [Concomitant]
     Dosage: 15 UG, UNK
     Route: 048
     Dates: start: 20100406
  9. BENIDIPINE [Concomitant]
     Indication: HYPERTENSION
     Dosage: 4 MG, UNK
     Route: 048
     Dates: start: 20100406

REACTIONS (8)
  - GASTRIC CANCER [None]
  - HAEMOGLOBIN DECREASED [None]
  - ANAEMIA [None]
  - NASOPHARYNGITIS [None]
  - ARTHRALGIA [None]
  - RHEUMATOID ARTHRITIS [None]
  - GASTROINTESTINAL HAEMORRHAGE [None]
  - HAEMATOCRIT DECREASED [None]
